FAERS Safety Report 21112836 (Version 2)
Quarter: 2022Q3

REPORT INFORMATION
  Report Type: Spontaneous
  Country: US (occurrence: US)
  Receive Date: 20220721
  Receipt Date: 20220722
  Transmission Date: 20221026
  Serious: No
  Sender: FDA-Public Use
  Company Number: US-PFIZER INC-202200986828

PATIENT
  Sex: Female

DRUGS (1)
  1. PAXLOVID [Suspect]
     Active Substance: NIRMATRELVIR\RITONAVIR
     Indication: COVID-19 treatment
     Dosage: UNK
     Dates: start: 20220717

REACTIONS (8)
  - Productive cough [Unknown]
  - Dry throat [Unknown]
  - Oropharyngeal pain [Unknown]
  - Vomiting [Unknown]
  - Dehydration [Unknown]
  - Dry mouth [Unknown]
  - Balance disorder [Unknown]
  - Throat irritation [Unknown]

NARRATIVE: CASE EVENT DATE: 20220701
